FAERS Safety Report 15332681 (Version 1)
Quarter: 2018Q3

REPORT INFORMATION
  Report Type: Other
  Country: JP (occurrence: JP)
  Receive Date: 20180830
  Receipt Date: 20180830
  Transmission Date: 20181010
  Serious: No
  Sender: FDA-Public Use
  Company Number: JP-LUPIN PHARMACEUTICALS INC.-2018-01556

PATIENT
  Age: 68 Year
  Sex: Female

DRUGS (2)
  1. AMLODIPINE BESYLATE TABLETS USP, 5 MG [Suspect]
     Active Substance: AMLODIPINE BESYLATE
     Indication: BLOOD PRESSURE INCREASED
     Dosage: 5 MG, QD
     Route: 048
     Dates: start: 20180210, end: 20180223
  2. FLUTIFORM [Suspect]
     Active Substance: FLUTICASONE PROPIONATE\FORMOTEROL FUMARATE
     Indication: COUGH
     Dosage: 6 PUFFS, QD
     Dates: start: 20180210, end: 20180223

REACTIONS (2)
  - Dizziness [Recovered/Resolved]
  - Anxiety [Unknown]

NARRATIVE: CASE EVENT DATE: 20180210
